FAERS Safety Report 7301709-2 (Version None)
Quarter: 2011Q1

REPORT INFORMATION
  Report Type: 
  Country: None (occurrence: None)
  Receive Date: 20110218
  Receipt Date: 20110214
  Transmission Date: 20110831
  Serious: Yes (Other)
  Sender: FDA-Public Use
  Company Number: BR-ROCHE-709625

PATIENT
  Age: 17 Year
  Sex: Female
  Weight: 50 kg

DRUGS (10)
  1. METICORTEN [Suspect]
     Route: 065
     Dates: start: 20100601
  2. OMEPRAZOLE [Concomitant]
  3. SULFONA [Suspect]
     Route: 065
     Dates: start: 20100101, end: 20100101
  4. ROACUTAN [Suspect]
     Dosage: DOSE INCREASED
     Route: 048
  5. ROACUTAN [Suspect]
     Dosage: STRENGTH 10 AND 20 MG, INDICATION: ACNE
     Route: 048
     Dates: start: 20100301
  6. ROACUTAN [Suspect]
     Dosage: DOSE DECREASED.
     Route: 048
     Dates: end: 20100101
  7. METICORTEN [Suspect]
     Dosage: DOSE DECREASED.
     Route: 065
  8. YASMIN [Concomitant]
  9. ROACUTAN [Suspect]
     Indication: ACNE
     Dosage: STRENGTH: 20 MG, INDICATION: RESISTANT ACNE.
     Route: 048
     Dates: start: 20070101, end: 20080101
  10. METICORTEN [Suspect]
     Dosage: DOSE DECREASED.
     Route: 065

REACTIONS (15)
  - STRESS [None]
  - BLOOD TRIGLYCERIDES INCREASED [None]
  - DRUG INTOLERANCE [None]
  - DRY SKIN [None]
  - INFECTIOUS MONONUCLEOSIS [None]
  - DRUG INEFFECTIVE [None]
  - SCAR [None]
  - DEPRESSION [None]
  - ABDOMINAL PAIN UPPER [None]
  - LYMPHADENOPATHY [None]
  - SKIN LESION [None]
  - WEIGHT DECREASED [None]
  - HERPES ZOSTER [None]
  - ACNE [None]
  - HAEMOLYTIC ANAEMIA [None]
